FAERS Safety Report 5148349-1 (Version None)
Quarter: 2006Q4

REPORT INFORMATION
  Report Type: 
  Country: None (occurrence: None)
  Receive Date: 20061106
  Receipt Date: 20061023
  Transmission Date: 20070319
  Serious: Yes (Other)
  Sender: FDA-Public Use
  Company Number: 2006131257

PATIENT
  Age: 48 Year
  Sex: Female

DRUGS (4)
  1. LYRICA [Suspect]
     Indication: EPILEPSY
     Dates: start: 20060101
  2. TEGRETOL [Concomitant]
  3. TOPIRAMATE [Concomitant]
  4. DI-HYDAN (PHENYTOIN) [Concomitant]

REACTIONS (4)
  - CLUMSINESS [None]
  - FALL [None]
  - LOSS OF CONTROL OF LEGS [None]
  - VISUAL DISTURBANCE [None]
